FAERS Safety Report 11416413 (Version 1)
Quarter: 2015Q3

REPORT INFORMATION
  Report Type: Spontaneous
  Country: NL (occurrence: NL)
  Receive Date: 20150825
  Receipt Date: 20150825
  Transmission Date: 20151125
  Serious: Yes (Other)
  Sender: FDA-Public Use
  Company Number: NL-AMGEN-NLDSP2015085915

PATIENT
  Sex: Male

DRUGS (1)
  1. FILGRASTIM [Suspect]
     Active Substance: FILGRASTIM
     Indication: IMMUNOMODULATORY THERAPY
     Dosage: 5 MUG/KG, 2 TIMES/WK
     Route: 058

REACTIONS (4)
  - Interleukin level decreased [Unknown]
  - Off label use [Unknown]
  - No therapeutic response [Unknown]
  - Infection susceptibility increased [Unknown]
